FAERS Safety Report 13209338 (Version 1)
Quarter: 2017Q1

REPORT INFORMATION
  Report Type: Spontaneous
  Country: US (occurrence: US)
  Receive Date: 20170209
  Receipt Date: 20170209
  Transmission Date: 20170428
  Serious: Yes (Other)
  Sender: FDA-Public Use
  Company Number: US-SMITH AND NEPHEW, INC-2017SMT00078

PATIENT
  Age: 75 Year
  Sex: Male

DRUGS (7)
  1. REGRANEX [Suspect]
     Active Substance: BECAPLERMIN
     Indication: WOUND
     Dosage: UNK UNK, 1X/DAY
     Route: 061
     Dates: start: 201701
  2. CARVEDILOL. [Concomitant]
     Active Substance: CARVEDILOL
  3. LYRICA [Concomitant]
     Active Substance: PREGABALIN
  4. HUMALOG MIX75/25 [Concomitant]
     Active Substance: INSULIN LISPRO
  5. NIFEDICAL XL [Concomitant]
     Active Substance: NIFEDIPINE
  6. CRESTOR [Concomitant]
     Active Substance: ROSUVASTATIN CALCIUM
  7. CILOSTAZOL. [Concomitant]
     Active Substance: CILOSTAZOL

REACTIONS (5)
  - Osteomyelitis [Unknown]
  - Wound secretion [Not Recovered/Not Resolved]
  - Drug ineffective [Not Recovered/Not Resolved]
  - Incorrect drug administration duration [Not Recovered/Not Resolved]
  - Wound infection [Unknown]

NARRATIVE: CASE EVENT DATE: 201701
